FAERS Safety Report 8822609 (Version 1)
Quarter: 2012Q4

REPORT INFORMATION
  Report Type: 
  Country: US (occurrence: US)
  Receive Date: 20121003
  Receipt Date: 20121003
  Transmission Date: 20130627
  Serious: No
  Sender: FDA-Public Use
  Company Number: US-ASTRAZENECA-2012SE73124

PATIENT
  Age: 61 Year
  Sex: Female
  Weight: 74.4 kg

DRUGS (4)
  1. ATENOLOL [Suspect]
     Indication: HYPERTENSION
     Route: 048
  2. NEXIUM [Suspect]
     Indication: GASTROOESOPHAGEAL REFLUX DISEASE
     Route: 048
  3. CHLORTHALIDONE [Concomitant]
     Indication: HYPERTENSION
  4. FIRICOT [Concomitant]
     Indication: MIGRAINE

REACTIONS (4)
  - Chronic obstructive pulmonary disease [Unknown]
  - Asthma [Unknown]
  - Intentional drug misuse [Unknown]
  - Off label use [Unknown]
